FAERS Safety Report 8837123 (Version 1)
Quarter: 2012Q4

REPORT INFORMATION
  Report Type: 
  Country: BR (occurrence: BR)
  Receive Date: 20121012
  Receipt Date: 20121012
  Transmission Date: 20130627
  Serious: Yes (Hospitalization)
  Sender: FDA-Public Use
  Company Number: BR-BRISTOL-MYERS SQUIBB COMPANY-17019167

PATIENT
  Age: 74 Year
  Sex: Female
  Weight: 51 kg

DRUGS (9)
  1. ONGLYZA TABS 5 MG [Suspect]
     Indication: TYPE 2 DIABETES MELLITUS
     Dosage: 3 years ago
     Route: 048
  2. GLIFAGE [Suspect]
  3. ARADOIS H [Concomitant]
  4. COMBIGAN [Concomitant]
     Dosage: Eye drops
  5. RANITIDINE [Concomitant]
  6. GINKGO BILOBA [Concomitant]
  7. PIRACETAM [Concomitant]
  8. VITAMINS [Concomitant]
  9. ENSURE [Concomitant]

REACTIONS (5)
  - Cholelithiasis [Unknown]
  - Anaemia [Unknown]
  - Infection [Recovered/Resolved]
  - Oedema peripheral [Unknown]
  - Blood glucose decreased [Unknown]
